FAERS Safety Report 8929359 (Version 1)
Quarter: 2012Q4

REPORT INFORMATION
  Report Type: Spontaneous
  Country: DE (occurrence: None)
  Receive Date: 20121119
  Receipt Date: 20121119
  Transmission Date: 20130627
  Serious: Yes (Death)
  Sender: FDA-Public Use
  Company Number: VAL_00989_2012

PATIENT
  Age: 33 Year
  Sex: Male

DRUGS (4)
  1. METOPROLOL [Suspect]
     Indication: SUICIDAL IDEATION
     Dosage: DF, PO
     Route: 048
  2. AMLODIPINE [Suspect]
     Dosage: DF, Oral
     Route: 048
  3. DIPHENHYDRAMINE HYDROCHLORIDE [Suspect]
     Dosage: DF, Oral
     Route: 048
  4. ETHANOL [Suspect]
     Dosage: DF

REACTIONS (4)
  - Intentional overdose [None]
  - Cerebrovascular disorder [None]
  - Alcohol use [None]
  - Completed suicide [None]
